FAERS Safety Report 7712566-4 (Version None)
Quarter: 2011Q3

REPORT INFORMATION
  Report Type: 
  Country: None (occurrence: None)
  Receive Date: 20110826
  Receipt Date: 20110824
  Transmission Date: 20111222
  Serious: Yes (Other)
  Sender: FDA-Public Use
  Company Number: US-VERTEX PHARMACEUTICALS INC.-AE-2011-000749

PATIENT
  Sex: Male

DRUGS (4)
  1. RIBAVIRIN [Concomitant]
     Indication: HEPATITIS C
     Dates: start: 20110722
  2. INCIVEK [Suspect]
     Indication: HEPATITIS C
     Dates: start: 20110722
  3. PEGINTERFERON [Concomitant]
     Indication: HEPATITIS C
     Dates: start: 20110722
  4. FLOMAX [Concomitant]

REACTIONS (4)
  - HYPOTENSION [None]
  - SYNCOPE [None]
  - DRUG INTERACTION [None]
  - ROAD TRAFFIC ACCIDENT [None]
